FAERS Safety Report 17927855 (Version 1)
Quarter: 2020Q2

REPORT INFORMATION
  Report Type: Spontaneous
  Country: US (occurrence: US)
  Receive Date: 20200623
  Receipt Date: 20200623
  Transmission Date: 20200714
  Serious: No
  Sender: FDA-Public Use
  Company Number: US-JNJFOC-20200617077

PATIENT
  Age: 8 Year
  Sex: Male

DRUGS (2)
  1. ROGAINE [Suspect]
     Active Substance: MINOXIDIL
     Indication: MADAROSIS
  2. ROGAINE [Suspect]
     Active Substance: MINOXIDIL
     Indication: ALOPECIA
     Route: 065

REACTIONS (4)
  - Product administered at inappropriate site [Unknown]
  - Product use in unapproved indication [Unknown]
  - Product administered to patient of inappropriate age [Unknown]
  - Off label use [Unknown]
